FAERS Safety Report 25138457 (Version 1)
Quarter: 2025Q1

REPORT INFORMATION
  Report Type: Report from Study
  Country: US (occurrence: US)
  Receive Date: 20250330
  Receipt Date: 20250330
  Transmission Date: 20250409
  Serious: Yes (Hospitalization)
  Sender: ETON PHARMACEUTICALS, INC
  Company Number: US-ETON PHARMACEUTICALS, INC-2025ETO000117

PATIENT

DRUGS (4)
  1. ALKINDI SPRINKLE [Suspect]
     Active Substance: HYDROCORTISONE
     Indication: Primary adrenal insufficiency
     Dosage: 5 MILLIGRAM, TID
     Route: 048
     Dates: start: 20250116
  2. SPIRIVA [Concomitant]
     Active Substance: TIOTROPIUM BROMIDE MONOHYDRATE
     Indication: Asthma
  3. ADVAIR HFA [Concomitant]
     Active Substance: FLUTICASONE PROPIONATE\SALMETEROL XINAFOATE
     Indication: Asthma
  4. IMITREX [Concomitant]
     Active Substance: SUMATRIPTAN SUCCINATE
     Indication: Migraine

REACTIONS (1)
  - Ammonia increased [Recovered/Resolved]
